FAERS Safety Report 5109765-7 (Version None)
Quarter: 2006Q3

REPORT INFORMATION
  Report Type: 
  Country: None (occurrence: None)
  Receive Date: 20060915
  Receipt Date: 20060824
  Transmission Date: 20061208
  Serious: Yes (Other)
  Sender: FDA-Public Use
  Company Number: 2006109077

PATIENT
  Sex: Female

DRUGS (4)
  1. LYRICA [Suspect]
     Indication: PARTIAL SEIZURES
     Dosage: 150 MG (75 MG, 2 IN 1 D)
  2. TRILEPTAL [Concomitant]
  3. URBANYL (CLOBAZAM) [Concomitant]
  4. PRAZEPAM [Concomitant]

REACTIONS (4)
  - ASTHENIA [None]
  - CONDITION AGGRAVATED [None]
  - CONVULSION [None]
  - FATIGUE [None]
